FAERS Safety Report 9599784 (Version 1)
Quarter: 2013Q4

REPORT INFORMATION
  Report Type: Spontaneous
  Country: US (occurrence: US)
  Receive Date: 20131004
  Receipt Date: 20131004
  Transmission Date: 20140711
  Serious: No
  Sender: FDA-Public Use
  Company Number: US-AMGEN-USASP2013031424

PATIENT
  Age: 54 Year
  Sex: Female
  Weight: 80.73 kg

DRUGS (11)
  1. ENBREL [Suspect]
     Indication: PRODUCT USED FOR UNKNOWN INDICATION
     Dosage: 50 MG, QWK
     Route: 058
  2. AMLODIPINE [Concomitant]
     Dosage: 10 MG, UNK
  3. TRIAMTERENE/HCTZ [Concomitant]
     Dosage: 25-50 MG, UNK
  4. PRILOSEC                           /00661201/ [Concomitant]
     Dosage: 20 MG, UNK
  5. TRAVATAN [Concomitant]
     Dosage: 0.004 %, UNK
  6. CLONIDINE [Concomitant]
     Dosage: 0.1 MG, UNK
  7. NASALCROM [Concomitant]
     Dosage: 5.2/ACT UNK, UNK
  8. ALBUTEROL                          /00139501/ [Concomitant]
     Dosage: 90 MUG, UNK
  9. TRAMADOL HCL [Concomitant]
     Dosage: 150 MG, UNK
  10. MUCINEX DM [Concomitant]
     Dosage: 60-1200 UNK, UNK
  11. NIACIN [Concomitant]
     Dosage: 400 MG, UNK

REACTIONS (5)
  - Musculoskeletal stiffness [Unknown]
  - Rheumatoid arthritis [Unknown]
  - Arthralgia [Unknown]
  - Local swelling [Unknown]
  - Sinusitis [Recovered/Resolved]
